FAERS Safety Report 7634976-6 (Version None)
Quarter: 2011Q3

REPORT INFORMATION
  Report Type: 
  Country: None (occurrence: None)
  Receive Date: 20110718
  Receipt Date: 20110708
  Transmission Date: 20111222
  Serious: Yes (Hospitalization)
  Sender: FDA-Public Use
  Company Number: WAES 0710USA02304

PATIENT
  Age: 40 Year
  Sex: Male

DRUGS (18)
  1. TAB STOCRIN (EFAVIRENZ) [Suspect]
     Indication: HIV INFECTION
     Dosage: 600 MG/DAILY PO ; 600 MG/DAILY PO ; 600 MG/DAILY PO
     Route: 048
     Dates: start: 20051209, end: 20070711
  2. TAB STOCRIN (EFAVIRENZ) [Suspect]
     Indication: HIV INFECTION
     Dosage: 600 MG/DAILY PO ; 600 MG/DAILY PO ; 600 MG/DAILY PO
     Route: 048
     Dates: start: 20090717, end: 20091016
  3. TAB STOCRIN (EFAVIRENZ) [Suspect]
     Indication: HIV INFECTION
     Dosage: 600 MG/DAILY PO ; 600 MG/DAILY PO ; 600 MG/DAILY PO
     Route: 048
     Dates: start: 20040614, end: 20041221
  4. KALETRA [Suspect]
     Indication: HIV INFECTION
     Dosage: 6 DOSE/DAILY PO ; 4 DOSE/DAILY PO
     Route: 048
     Dates: start: 20040514, end: 20040630
  5. KALETRA [Suspect]
     Indication: HIV INFECTION
     Dosage: 6 DOSE/DAILY PO ; 4 DOSE/DAILY PO
     Route: 048
     Dates: start: 20070511, end: 20091016
  6. TRUVADA [Suspect]
     Indication: HIV INFECTION
     Dosage: 1 TAB/DAILY PO
     Route: 048
     Dates: start: 20071214, end: 20101001
  7. EPIVIR [Suspect]
     Indication: HIV INFECTION
     Dosage: 150 MG/BID PO ; 300 MG/BID PO
     Route: 048
     Dates: start: 20050803, end: 20071213
  8. EPIVIR [Suspect]
     Indication: HIV INFECTION
     Dosage: 150 MG/BID PO ; 300 MG/BID PO
     Route: 048
     Dates: start: 20050722, end: 20050802
  9. REYATAZ [Suspect]
     Indication: HIV INFECTION
     Dosage: 300 MG/DAILY PO ; 300 MG/DAILY PO
     Route: 048
     Dates: start: 20041221, end: 20050121
  10. REYATAZ [Suspect]
     Indication: HIV INFECTION
     Dosage: 300 MG/DAILY PO ; 300 MG/DAILY PO
     Route: 048
     Dates: start: 20050622, end: 20070510
  11. VIREAD [Suspect]
     Indication: HIV INFECTION
     Dosage: 300 MG/DAILY PO
     Route: 048
     Dates: start: 20050802, end: 20071213
  12. COMBIVIR [Suspect]
     Indication: HIV INFECTION
     Dates: end: 20050121
  13. COMBIVIR [Suspect]
     Indication: HIV INFECTION
     Dates: start: 20050522, end: 20050722
  14. NORVIR [Suspect]
     Indication: HIV INFECTION
     Dosage: 100 MG/DAILY PO ; 100 MG/DAILY PO ; 100 MG/DAILY PO ; 100 MG/DAILY PO
     Route: 048
     Dates: start: 20050622, end: 20070510
  15. NORVIR [Suspect]
     Indication: HIV INFECTION
     Dosage: 100 MG/DAILY PO ; 100 MG/DAILY PO ; 100 MG/DAILY PO ; 100 MG/DAILY PO
     Route: 048
     Dates: start: 20041221, end: 20050121
  16. NORVIR [Suspect]
     Indication: HIV INFECTION
     Dosage: 100 MG/DAILY PO ; 100 MG/DAILY PO ; 100 MG/DAILY PO ; 100 MG/DAILY PO
     Route: 048
     Dates: start: 20110119
  17. ISENTRESS [Suspect]
     Indication: HIV INFECTION
     Dosage: 800 MG/DAILY PO
     Route: 048
     Dates: start: 20091016, end: 20100930
  18. RETROVIR [Suspect]
     Indication: HIV INFECTION
     Dates: start: 20050722, end: 20050802

REACTIONS (2)
  - DIABETES MELLITUS INADEQUATE CONTROL [None]
  - UNEVALUABLE EVENT [None]
